FAERS Safety Report 11214417 (Version 1)
Quarter: 2015Q2

REPORT INFORMATION
  Report Type: Spontaneous
  Country: TR (occurrence: TR)
  Receive Date: 20150624
  Receipt Date: 20150624
  Transmission Date: 20150821
  Serious: Yes (Other)
  Sender: FDA-Public Use
  Company Number: TR-AMGEN-TURSP2015061473

PATIENT
  Age: 64 Year
  Sex: Female

DRUGS (1)
  1. ENBREL [Suspect]
     Active Substance: ETANERCEPT
     Indication: RHEUMATOID ARTHRITIS
     Dosage: 50 MG, WEEKLY
     Route: 058
     Dates: start: 201408, end: 201505

REACTIONS (7)
  - Balance disorder [Recovering/Resolving]
  - Multiple fractures [Recovering/Resolving]
  - Fall [Recovering/Resolving]
  - Upper limb fracture [Recovering/Resolving]
  - Fractured coccyx [Recovering/Resolving]
  - Hip fracture [Recovering/Resolving]
  - Accident at home [Recovering/Resolving]

NARRATIVE: CASE EVENT DATE: 20150501
